FAERS Safety Report 4964506-9 (Version None)
Quarter: 2006Q1

REPORT INFORMATION
  Report Type: 
  Country: None (occurrence: None)
  Receive Date: 20060331
  Receipt Date: 20060322
  Transmission Date: 20060701
  Serious: Yes (Other)
  Sender: FDA-Public Use
  Company Number: FABR-11433

PATIENT
  Age: 16 Year
  Sex: Male
  Weight: 39 kg

DRUGS (2)
  1. FABRAZYME [Suspect]
     Indication: FABRY'S DISEASE
     Dosage: 40 MG Q2WKS IV
     Route: 042
     Dates: start: 20051102
  2. CARBAMAZEPINE [Concomitant]

REACTIONS (1)
  - ANAPHYLACTOID REACTION [None]
